FAERS Safety Report 9025685 (Version 1)
Quarter: 2013Q1

REPORT INFORMATION
  Report Type: Spontaneous
  Country: DE (occurrence: DE)
  Receive Date: 20130123
  Receipt Date: 20130123
  Transmission Date: 20140127
  Serious: Yes (Other)
  Sender: FDA-Public Use
  Company Number: DE-BIOGENIDEC-2012BI050429

PATIENT
  Age: 38 Year
  Sex: Female
  Weight: 102 kg

DRUGS (1)
  1. AVONEX [Suspect]
     Indication: MULTIPLE SCLEROSIS
     Route: 030
     Dates: start: 20110101, end: 201205

REACTIONS (2)
  - Placental transfusion syndrome [Recovered/Resolved]
  - Twin pregnancy [Recovered/Resolved]
